FAERS Safety Report 25613488 (Version 2)
Quarter: 2025Q3

REPORT INFORMATION
  Report Type: Spontaneous
  Country: EU (occurrence: EU)
  Receive Date: 20250728
  Receipt Date: 20250801
  Transmission Date: 20251020
  Serious: Yes (Other)
  Sender: TEVA
  Company Number: EU-TEVA-VS-3355204

PATIENT
  Age: 67 Year
  Sex: Male

DRUGS (3)
  1. ACTIQ [Suspect]
     Active Substance: FENTANYL CITRATE
     Indication: Pain
     Route: 048
  2. ACTIQ [Suspect]
     Active Substance: FENTANYL CITRATE
     Indication: Pain
     Route: 048
  3. ZOLPIDEM [Concomitant]
     Active Substance: ZOLPIDEM TARTRATE
     Indication: Product used for unknown indication
     Dosage: 1 TABLET AT BEDTIME FOR 28 DAYS
     Route: 065
     Dates: start: 20250624

REACTIONS (6)
  - Drug dependence [Unknown]
  - Withdrawal syndrome [Unknown]
  - Product prescribing issue [Unknown]
  - Product use in unapproved indication [Unknown]
  - Product use issue [Unknown]
  - Tooth disorder [Unknown]

NARRATIVE: CASE EVENT DATE: 20241101
